FAERS Safety Report 4730993-4 (Version None)
Quarter: 2005Q3

REPORT INFORMATION
  Report Type: 
  Country: None (occurrence: None)
  Receive Date: 20050726
  Receipt Date: 20050315
  Transmission Date: 20060218
  Serious: Yes (Death)
  Sender: FDA-Public Use
  Company Number: 04GER0256

PATIENT
  Age: 75 Year
  Sex: Male

DRUGS (2)
  1. AGGRASTAT [Suspect]
     Indication: BASILAR ARTERY THROMBOSIS
     Dosage: 3 ML
     Dates: start: 20031211, end: 20031211
  2. ALTEPLASE (ALTEPLASE) (145 MILLIGRAM) [Suspect]
     Indication: BASILAR ARTERY THROMBOSIS
     Dosage: 145 MG/QD
     Dates: start: 20031211, end: 20031211

REACTIONS (2)
  - HAEMORRHAGE [None]
  - PHARYNGEAL HAEMORRHAGE [None]
